FAERS Safety Report 21807640 (Version 1)
Quarter: 2023Q1

REPORT INFORMATION
  Report Type: Other
  Country: IN (occurrence: IN)
  Receive Date: 20230103
  Receipt Date: 20230103
  Transmission Date: 20230417
  Serious: Yes (Life-Threatening)
  Sender: FDA-Public Use
  Company Number: IN-BoehringerIngelheim-2022-BI-210290

PATIENT
  Sex: Male

DRUGS (1)
  1. METALYSE [Suspect]
     Active Substance: TENECTEPLASE
     Indication: Pulmonary embolism
     Route: 042

REACTIONS (1)
  - Respiratory failure [Recovering/Resolving]
